FAERS Safety Report 4973052-8 (Version None)
Quarter: 2006Q2

REPORT INFORMATION
  Report Type: 
  Country: None (occurrence: None)
  Receive Date: 20060414
  Receipt Date: 20060411
  Transmission Date: 20061013
  Serious: Yes (Life-Threatening)
  Sender: FDA-Public Use
  Company Number: 2006GB00629

PATIENT
  Age: 6 Month
  Sex: Male

DRUGS (1)
  1. MARCAINE [Suspect]
     Indication: ANAESTHESIA
     Route: 037
     Dates: start: 20060301, end: 20060301

REACTIONS (4)
  - APNOEA [None]
  - BRADYCARDIA [None]
  - HYPERTENSION [None]
  - TACHYCARDIA [None]
